FAERS Safety Report 7864992-0 (Version None)
Quarter: 2011Q4

REPORT INFORMATION
  Report Type: 
  Country: None (occurrence: None)
  Receive Date: 20111028
  Receipt Date: 20100927
  Transmission Date: 20120403
  Serious: No
  Sender: FDA-Public Use
  Company Number: US-GLAXOSMITHKLINE-A0883539A

PATIENT
  Age: 49 Year
  Sex: Male

DRUGS (19)
  1. TRICOR [Concomitant]
  2. POTASSIUM [Concomitant]
  3. MULTI-VITAMIN [Concomitant]
  4. BIPAP [Concomitant]
  5. NIACIN [Concomitant]
  6. MAGNESIUM [Concomitant]
  7. NEXIUM [Concomitant]
  8. FUROSEMIDE [Concomitant]
  9. COLCHICINE [Concomitant]
  10. CALCIUM CARBONATE [Concomitant]
  11. ATROVENT [Concomitant]
  12. GABAPENTIN [Concomitant]
  13. METFORMIN HCL [Concomitant]
  14. SUPER B [Concomitant]
  15. ASCORBIC ACID [Concomitant]
  16. ADVAIR DISKUS 100/50 [Suspect]
     Indication: CHRONIC OBSTRUCTIVE PULMONARY DISEASE
     Dosage: 1PUFF TWICE PER DAY
     Route: 055
     Dates: start: 20100903
  17. ALBUTEROL [Concomitant]
  18. HYDROCHLOROTHIAZIDE [Concomitant]
  19. BENAZEPRIL HYDROCHLORIDE [Concomitant]

REACTIONS (1)
  - DRUG INEFFECTIVE [None]
